FAERS Safety Report 8061274-1 (Version None)
Quarter: 2012Q1

REPORT INFORMATION
  Report Type: 
  Country: None (occurrence: None)
  Receive Date: 20120120
  Receipt Date: 20110812
  Transmission Date: 20120608
  Serious: No
  Sender: FDA-Public Use
  Company Number: US-ALLERGAN-1110888US

PATIENT
  Sex: Female

DRUGS (2)
  1. WIPE PADS [Concomitant]
     Indication: THERAPEUTIC SKIN CARE TOPICAL
     Dosage: UNK
  2. RESTASIS [Suspect]
     Indication: DRY EYE
     Dosage: 1 GTT, BID TO RIGHT EYE
     Route: 047
     Dates: start: 20110802

REACTIONS (1)
  - FOREIGN BODY SENSATION IN EYES [None]
